FAERS Safety Report 13944177 (Version 1)
Quarter: 2017Q3

REPORT INFORMATION
  Report Type: Spontaneous
  Country: US (occurrence: US)
  Receive Date: 20170907
  Receipt Date: 20170907
  Transmission Date: 20171128
  Serious: No
  Sender: FDA-Public Use
  Company Number: US-ROCHE-1379646

PATIENT
  Age: 36 Year
  Sex: Female
  Weight: 74 kg

DRUGS (2)
  1. SOLU-MEDROL [Concomitant]
     Active Substance: METHYLPREDNISOLONE SODIUM SUCCINATE
     Route: 042
     Dates: start: 20140129, end: 20140129
  2. RITUXAN [Suspect]
     Active Substance: RITUXIMAB
     Indication: RHEUMATOID ARTHRITIS
     Route: 042
     Dates: start: 20140129, end: 20140129

REACTIONS (4)
  - Infusion related reaction [Recovered/Resolved]
  - Lip swelling [Recovered/Resolved]
  - Urticaria [Recovered/Resolved]
  - Throat irritation [Recovered/Resolved]

NARRATIVE: CASE EVENT DATE: 20140129
